FAERS Safety Report 8573663-7 (Version None)
Quarter: 2012Q2

REPORT INFORMATION
  Report Type: 
  Country: None (occurrence: None)
  Receive Date: 20120423
  Receipt Date: 20100517
  Transmission Date: 20120825
  Serious: Yes (Other)
  Sender: FDA-Public Use
  Company Number: PHHY2010US26917

PATIENT
  Age: 78 Year
  Sex: Male

DRUGS (2)
  1. CHEMOTHERAPEUTICS NOS (NO INGREDIENTS/SUBSTANCES) [Concomitant]
  2. EXJADE [Suspect]
     Dosage: 1250 MG, QD, ORAL
     Route: 048

REACTIONS (1)
  - THROMBOCYTOPENIA [None]
